FAERS Safety Report 4571715-X (Version None)
Quarter: 2005Q1

REPORT INFORMATION
  Report Type: 
  Country: None (occurrence: None)
  Receive Date: 20050207
  Receipt Date: 20050127
  Transmission Date: 20050727
  Serious: Yes (Other)
  Sender: FDA-Public Use
  Company Number: US-ROCHE-393881

PATIENT
  Age: 42 Year
  Sex: Male

DRUGS (5)
  1. PEGASYS [Suspect]
     Indication: HEPATITIS C
     Route: 065
     Dates: start: 20040124
  2. COPEGUS [Suspect]
     Indication: HEPATITIS C
     Route: 065
     Dates: start: 20040124
  3. PEG-INTRON [Suspect]
     Indication: HEPATITIS C
     Route: 058
     Dates: start: 20040608
  4. REBETOL [Suspect]
     Indication: HEPATITIS C
     Route: 065
     Dates: start: 20040608
  5. CELEXA [Concomitant]
     Dosage: DRUG REPORTED AS: CELEXA (CITALOPRAM) 10-20 MG
     Route: 048

REACTIONS (6)
  - ANGER [None]
  - ASTHENIA [None]
  - PHARYNGEAL HAEMORRHAGE [None]
  - POST PROCEDURAL HAEMORRHAGE [None]
  - SCREAMING [None]
  - TOOTH LOSS [None]
